FAERS Safety Report 23802253 (Version 2)
Quarter: 2024Q2

REPORT INFORMATION
  Report Type: Spontaneous
  Country: US (occurrence: US)
  Receive Date: 20240501
  Receipt Date: 20240514
  Transmission Date: 20240716
  Serious: No
  Sender: FDA-Public Use
  Company Number: US-HALEON-2169531

PATIENT
  Age: 79 Year
  Sex: Female

DRUGS (2)
  1. SENSODYNE REPAIR AND PROTECT EXTRA FRESH [Suspect]
     Active Substance: STANNOUS FLUORIDE
     Indication: Product used for unknown indication
     Dosage: EXPDATE:202506EXPDATE:202506
  2. SENSODYNE [Suspect]
     Active Substance: POTASSIUM NITRATE\SODIUM FLUORIDE
     Indication: Product used for unknown indication

REACTIONS (2)
  - Dry mouth [Unknown]
  - Secretion discharge [Unknown]
